FAERS Safety Report 7807581-6 (Version None)
Quarter: 2011Q4

REPORT INFORMATION
  Report Type: 
  Country: None (occurrence: None)
  Receive Date: 20111011
  Receipt Date: 20111006
  Transmission Date: 20120403
  Serious: Yes (Hospitalization)
  Sender: FDA-Public Use
  Company Number: CA-ABBOTT-11P-028-0862085-00

PATIENT
  Sex: Male
  Weight: 57.658 kg

DRUGS (19)
  1. CALCIUM CARBONATE [Concomitant]
     Indication: MINERAL SUPPLEMENTATION
     Route: 048
  2. NEURONTIN [Concomitant]
     Indication: CEREBROVASCULAR ACCIDENT
     Route: 048
  3. ALTACE [Concomitant]
     Indication: HYPERTENSION
     Route: 048
  4. FLOMAX [Concomitant]
     Indication: PROSTATIC DISORDER
     Route: 048
  5. PROSCAR [Concomitant]
     Indication: PROSTATIC DISORDER
     Route: 048
  6. FOSAMAX [Concomitant]
     Indication: PRODUCT USED FOR UNKNOWN INDICATION
     Route: 048
  7. TIAZAC [Concomitant]
     Indication: CARDIAC DISORDER
     Route: 048
  8. HUMIRA [Suspect]
     Indication: RHEUMATOID ARTHRITIS
     Route: 058
     Dates: start: 20090729, end: 20110527
  9. PLAVIX [Concomitant]
     Indication: ANTICOAGULANT THERAPY
     Route: 048
  10. PANTOPRAZOLE SODIUM [Concomitant]
     Indication: GASTRIC DISORDER
     Route: 048
  11. PRAVACHOL [Concomitant]
     Indication: BLOOD CHOLESTEROL INCREASED
     Route: 048
  12. VENTOLIN [Concomitant]
     Indication: ASTHMA
     Route: 055
  13. ZOPICLONE [Concomitant]
     Indication: SLEEP DISORDER THERAPY
     Route: 048
  14. VITALUX [Concomitant]
     Indication: VITAMIN SUPPLEMENTATION
     Dosage: UNKNOWN
     Route: 048
  15. FLOVENT [Concomitant]
     Indication: ASTHMA
     Route: 055
  16. PREDNISONE [Concomitant]
     Indication: RHEUMATOID ARTHRITIS
     Route: 048
  17. NITROGLYCERIN [Concomitant]
     Indication: CARDIAC DISORDER
     Route: 061
  18. VITAMIN D [Concomitant]
     Indication: VITAMIN SUPPLEMENTATION
     Route: 048
  19. SPIRIVA [Concomitant]
     Indication: ASTHMA
     Route: 055

REACTIONS (2)
  - PNEUMONIA [None]
  - LOSS OF CONSCIOUSNESS [None]
